FAERS Safety Report 19743143 (Version 2)
Quarter: 2021Q4

REPORT INFORMATION
  Report Type: Spontaneous
  Country: US (occurrence: US)
  Receive Date: 20210825
  Receipt Date: 20211002
  Transmission Date: 20220303
  Serious: No
  Sender: FDA-Public Use
  Company Number: US-GSKCCFUS-CASE-01143602_AE-67282

PATIENT
  Sex: Female

DRUGS (1)
  1. NUCALA [Suspect]
     Active Substance: MEPOLIZUMAB
     Indication: Asthma
     Dosage: 100 MG, Z
     Route: 058
     Dates: start: 20210716

REACTIONS (5)
  - Headache [Not Recovered/Not Resolved]
  - Asthma [Not Recovered/Not Resolved]
  - Disturbance in attention [Unknown]
  - Wrong technique in device usage process [Unknown]
  - Drug ineffective [Unknown]
